FAERS Safety Report 5027103-5 (Version None)
Quarter: 2006Q2

REPORT INFORMATION
  Report Type: 
  Country: None (occurrence: None)
  Receive Date: 20060609
  Receipt Date: 20060426
  Transmission Date: 20061013
  Serious: Yes (Hospitalization, Disabling, Other)
  Sender: FDA-Public Use
  Company Number: 2005087816

PATIENT
  Age: 80 Year
  Sex: Male

DRUGS (5)
  1. BEXTRA [Suspect]
     Indication: ILL-DEFINED DISORDER
     Dosage: 20 MG (20 MG, 1 IN 1 D)
     Dates: start: 20040816
  2. PLAVIX [Concomitant]
  3. TYLOX (OXYCODONE HYDROCHLORIDE, PARACETAMOL) [Concomitant]
  4. BETAGAN [Concomitant]
  5. MULTIVITAMINS, PLAIN (MULTIVITAMINS, PLAIN) [Concomitant]

REACTIONS (5)
  - BLINDNESS CORTICAL [None]
  - BRADYCARDIA [None]
  - CEREBRAL ATROPHY [None]
  - CEREBRAL HAEMORRHAGE [None]
  - ENCEPHALOPATHY [None]
